FAERS Safety Report 20781291 (Version 1)
Quarter: 2022Q2

REPORT INFORMATION
  Report Type: Spontaneous
  Country: KR (occurrence: KR)
  Receive Date: 20220504
  Receipt Date: 20220504
  Transmission Date: 20220720
  Serious: Yes (Other)
  Sender: FDA-Public Use
  Company Number: KR-CELLTRION INC.-2022KR004874

PATIENT

DRUGS (3)
  1. INFLIXIMAB [Suspect]
     Active Substance: INFLIXIMAB
     Indication: Ankylosing spondylitis
     Dosage: UNK
     Dates: end: 20210915
  2. INFLIXIMAB [Suspect]
     Active Substance: INFLIXIMAB
     Dosage: 5 MG/KG, (INTERVAL: 6 WEEKS, LAST TREATMEMT)
     Dates: start: 20211110
  3. PELUBIPROFEN [Concomitant]
     Indication: Analgesic intervention supportive therapy
     Dosage: USED DURING FOLLOW-UP PERIOD

REACTIONS (1)
  - Ligament operation [Recovered/Resolved]
